FAERS Safety Report 4300076-6 (Version None)
Quarter: 2004Q1

REPORT INFORMATION
  Report Type: 
  Country: None (occurrence: None)
  Receive Date: 20040128
  Receipt Date: 20040202
  Transmission Date: 20041129
  Serious: Yes (Death, Disabling)
  Sender: FDA-Public Use
  Company Number: 2003AP04281

PATIENT
  Age: 52 Year
  Sex: Female

DRUGS (15)
  1. IRESSA [Suspect]
     Indication: LUNG ADENOCARCINOMA
     Dosage: 250 MG DAILY PO
     Route: 048
     Dates: start: 20030929, end: 20031017
  2. IRESSA [Suspect]
     Indication: NON-SMALL CELL LUNG CANCER
     Dosage: 250 MG DAILY PO
     Route: 048
     Dates: start: 20030929, end: 20031017
  3. DEPAKENE [Suspect]
     Indication: METASTASES TO CENTRAL NERVOUS SYSTEM
     Dosage: 1200 MG DAILY PO
     Route: 048
     Dates: start: 20030925, end: 20031008
  4. GASTER [Concomitant]
  5. GLYCEOL [Concomitant]
  6. PURSENNID [Concomitant]
  7. LOXONIN [Concomitant]
  8. SELBEX [Concomitant]
  9. PREDNISOLONE [Concomitant]
  10. VOLTAREN ^CIBA-GEICY^ [Concomitant]
  11. DECADRON [Concomitant]
  12. ANPEC [Concomitant]
  13. DUROTEP [Concomitant]
  14. CEFOTIAM HYDROCHLORIDE [Concomitant]
  15. OPSO [Concomitant]

REACTIONS (10)
  - ALANINE AMINOTRANSFERASE INCREASED [None]
  - ASPARTATE AMINOTRANSFERASE INCREASED [None]
  - BLOOD CREATINE PHOSPHOKINASE INCREASED [None]
  - BLOOD LACTATE DEHYDROGENASE INCREASED [None]
  - GAMMA-GLUTAMYLTRANSFERASE INCREASED [None]
  - INFECTION [None]
  - MALIGNANT NEOPLASM PROGRESSION [None]
  - NON-SMALL CELL LUNG CANCER METASTATIC [None]
  - PANCYTOPENIA [None]
  - PYREXIA [None]
